FAERS Safety Report 5334017-X (Version None)
Quarter: 2007Q2

REPORT INFORMATION
  Report Type: 
  Country: None (occurrence: None)
  Receive Date: 20070524
  Receipt Date: 20070514
  Transmission Date: 20071010
  Serious: Yes (Hospitalization, Other)
  Sender: FDA-Public Use
  Company Number: US-PFIZER INC-2007039605

PATIENT
  Sex: Male
  Weight: 87.727 kg

DRUGS (2)
  1. LYRICA [Suspect]
  2. ANTI-DIABETICS [Concomitant]

REACTIONS (5)
  - DIVERTICULUM [None]
  - INSOMNIA [None]
  - PLATELET COUNT DECREASED [None]
  - SPLENOMEGALY [None]
  - WEIGHT DECREASED [None]
